FAERS Safety Report 7157912-8 (Version None)
Quarter: 2010Q4

REPORT INFORMATION
  Report Type: 
  Country: None (occurrence: None)
  Receive Date: 20101214
  Receipt Date: 20101209
  Transmission Date: 20110411
  Serious: Yes (Hospitalization)
  Sender: FDA-Public Use
  Company Number: ES-MERCK-1012ESP00006

PATIENT
  Age: 60 Year
  Sex: Female

DRUGS (2)
  1. INVANZ [Suspect]
     Indication: URINARY TRACT INFECTION
     Route: 042
     Dates: start: 20100121, end: 20100204
  2. CIPROFLOXACIN [Concomitant]
     Route: 042

REACTIONS (2)
  - HEPATITIS [None]
  - HYPERBILIRUBINAEMIA [None]
